FAERS Safety Report 6774629-X (Version None)
Quarter: 2010Q2

REPORT INFORMATION
  Report Type: 
  Country: None (occurrence: None)
  Receive Date: 20100617
  Receipt Date: 20100608
  Transmission Date: 20101027
  Serious: Yes (Hospitalization, Other)
  Sender: FDA-Public Use
  Company Number: US-ROCHE-677403

PATIENT
  Sex: Female
  Weight: 63.5 kg

DRUGS (2)
  1. CAPECITABINE [Suspect]
     Indication: BREAST CANCER
     Route: 048
     Dates: start: 20091128
  2. CAPECITABINE [Suspect]
     Dosage: 2000 MG AM/1500 MG PM
     Route: 048
     Dates: start: 20091230

REACTIONS (9)
  - BONE PAIN [None]
  - DIARRHOEA [None]
  - DRY SKIN [None]
  - GAIT DISTURBANCE [None]
  - HAEMATEMESIS [None]
  - MALIGNANT NEOPLASM PROGRESSION [None]
  - NON-CARDIAC CHEST PAIN [None]
  - OROPHARYNGEAL BLISTERING [None]
  - PAIN IN EXTREMITY [None]
